FAERS Safety Report 25960617 (Version 6)
Quarter: 2025Q4

REPORT INFORMATION
  Report Type: Report from Study
  Country: CA (occurrence: CA)
  Receive Date: 20251027
  Receipt Date: 20251224
  Transmission Date: 20260118
  Serious: Yes (Other)
  Sender: ALEXION PHARMACEUTICALS
  Company Number: CA-AstraZeneca-CH-00976518A

PATIENT
  Sex: Female

DRUGS (6)
  1. TEZEPELUMAB [Suspect]
     Active Substance: TEZEPELUMAB
     Indication: Asthma
     Dosage: 210 MILLIGRAM
     Dates: start: 20250918, end: 20251016
  2. TEZEPELUMAB [Suspect]
     Active Substance: TEZEPELUMAB
  3. ATROVENT [Concomitant]
     Active Substance: IPRATROPIUM BROMIDE
     Dosage: 20MCG PRN
     Route: 065
  4. MONTELUKAST [Concomitant]
     Active Substance: MONTELUKAST
     Route: 065
  5. PREDNISONE [Concomitant]
     Active Substance: PREDNISONE
     Route: 065
  6. SYMBICORT [Concomitant]
     Active Substance: BUDESONIDE\FORMOTEROL FUMARATE DIHYDRATE
     Dosage: 200MCG 2INH BID
     Route: 065

REACTIONS (6)
  - Depression [Unknown]
  - Panic attack [Unknown]
  - Decreased appetite [Unknown]
  - Negative thoughts [Unknown]
  - Suicidal ideation [Unknown]
  - Anosmia [Unknown]
